FAERS Safety Report 8483865-6 (Version None)
Quarter: 2012Q3

REPORT INFORMATION
  Report Type: 
  Country: None (occurrence: None)
  Receive Date: 20120703
  Receipt Date: 20120625
  Transmission Date: 20120928
  Serious: Yes (Hospitalization, Other)
  Sender: FDA-Public Use
  Company Number: US-ASTRAZENECA-2011SE32254

PATIENT
  Age: 54 Year
  Sex: Female
  Weight: 118.8 kg

DRUGS (66)
  1. TOPROL-XL [Concomitant]
     Dates: start: 20110504
  2. ALPRAZOLAM [Concomitant]
     Route: 048
     Dates: start: 20100317
  3. PEPCID [Concomitant]
  4. MIRAPEX [Concomitant]
     Dates: start: 20100315
  5. CELEBREX [Concomitant]
     Dates: start: 20090605
  6. CELEBREX [Concomitant]
     Dates: start: 20090223
  7. VICODIN [Concomitant]
     Dosage: TQD FOR (30) NR
     Dates: start: 20080724
  8. VITAMIN B COMPLEX CAP [Concomitant]
     Dates: start: 20110504
  9. NEXIUM [Suspect]
     Indication: DYSPEPSIA
     Route: 048
     Dates: start: 20080307
  10. NEXIUM [Suspect]
     Route: 048
     Dates: start: 20090801, end: 20110401
  11. TOPROL-XL [Concomitant]
     Dates: start: 20090223
  12. BONIVA [Concomitant]
     Dosage: ONCE A MONTH
     Dates: start: 20110504
  13. MAXZIDE [Concomitant]
     Dosage: 75 MG 1/2 TAB DAILY
     Dates: start: 20100322
  14. MAXZIDE [Concomitant]
     Dates: start: 20110504
  15. LOVAZA [Concomitant]
     Dates: start: 20080724
  16. LOVAZA [Concomitant]
     Dates: start: 20110504
  17. MIRAPEX [Concomitant]
     Dates: start: 20101026
  18. MIRAPEX [Concomitant]
     Dates: start: 20110504
  19. LASIX [Concomitant]
     Dates: start: 20110504
  20. CALCIUM WITH VITAMIN D [Concomitant]
     Dates: start: 20110504
  21. NEXIUM [Suspect]
     Route: 048
     Dates: start: 20100507
  22. NEXIUM [Suspect]
     Route: 048
     Dates: start: 20110504
  23. TOPROL-XL [Concomitant]
     Dates: start: 20080724
  24. PROZAC [Concomitant]
     Dates: start: 20090223
  25. ASPIRIN [Concomitant]
     Dates: start: 20110504
  26. CLONAZEPAM [Concomitant]
     Dosage: TAKEN WHEN NEEDED
     Dates: start: 20110504
  27. ROLAIDS [Concomitant]
  28. BONIVA [Concomitant]
     Dates: start: 20090223
  29. HYDROCODONE [Concomitant]
     Dosage: 5/500 MG TAKEN WHEN NEEDED
     Dates: start: 20110504
  30. CELEBREX [Concomitant]
     Dates: start: 20080724
  31. DIAZEPAM [Concomitant]
     Indication: ANXIETY
     Dates: start: 20110504
  32. NEXIUM [Suspect]
     Indication: GASTROOESOPHAGEAL REFLUX DISEASE
     Route: 048
     Dates: start: 20080307
  33. NEXIUM [Suspect]
     Route: 048
     Dates: start: 20080724
  34. NEXIUM [Suspect]
     Route: 048
     Dates: start: 20080724
  35. NEXIUM [Suspect]
     Route: 048
     Dates: start: 20100322
  36. NEXIUM [Suspect]
     Route: 048
     Dates: start: 20100507
  37. PROZAC [Concomitant]
     Dates: start: 20100315
  38. PROZAC [Concomitant]
     Dates: start: 20110504
  39. LOVAZA [Concomitant]
     Dates: start: 20101026
  40. LOVAZA [Concomitant]
     Dates: start: 20100315
  41. MIRAPEX [Concomitant]
     Dates: start: 20090223
  42. GARLIC [Concomitant]
     Dosage: ONE A DAY
     Dates: start: 20090506
  43. CELEBREX [Concomitant]
     Dates: start: 20110504
  44. MULTI-VITAMIN [Concomitant]
  45. NEXIUM [Suspect]
     Route: 048
     Dates: start: 20090223
  46. NEXIUM [Suspect]
     Route: 048
     Dates: start: 20090605
  47. TOPROL-XL [Concomitant]
     Indication: HYPERTENSION
  48. PROZAC [Concomitant]
     Dates: start: 20080724
  49. MAXZIDE [Concomitant]
     Dates: start: 20090223
  50. MAXZIDE [Concomitant]
     Dates: start: 20080724
  51. HYDROCODONE [Concomitant]
     Dosage: 5 MG/500 MG
     Dates: start: 20090223
  52. NEXIUM [Suspect]
     Route: 048
     Dates: start: 20090223
  53. PROZAC [Concomitant]
     Indication: EMOTIONAL DISTRESS
     Dates: start: 20090506
  54. LOVAZA [Concomitant]
     Dates: start: 20090223
  55. HYDROCODONE [Concomitant]
     Dates: start: 20100315
  56. NEXIUM [Suspect]
     Route: 048
     Dates: start: 20090801, end: 20110401
  57. NEXIUM [Suspect]
     Route: 048
     Dates: start: 20100322
  58. NEXIUM [Suspect]
     Route: 048
     Dates: start: 20110504
  59. TOPROL-XL [Concomitant]
     Dates: start: 20100315
  60. ASPIRIN [Concomitant]
  61. CLONAZEPAM [Concomitant]
     Indication: EMOTIONAL DISTRESS
  62. MAXZIDE [Concomitant]
     Dates: start: 20090605
  63. HYDROCODONE [Concomitant]
     Dates: start: 20101026
  64. NEXIUM [Suspect]
     Route: 048
     Dates: start: 20090605
  65. ASPIRIN [Concomitant]
     Dates: start: 20090223
  66. BONIVA [Concomitant]
     Indication: OSTEOPOROSIS
     Dates: start: 20101026

REACTIONS (11)
  - NECK PAIN [None]
  - OSTEOPOROSIS [None]
  - SPINAL OSTEOARTHRITIS [None]
  - HAND FRACTURE [None]
  - ARTHRITIS [None]
  - BONE DISORDER [None]
  - BONE FORMATION DECREASED [None]
  - INTERVERTEBRAL DISC DEGENERATION [None]
  - OSTEOARTHRITIS [None]
  - INTERVERTEBRAL DISC PROTRUSION [None]
  - JOINT DISLOCATION [None]
